FAERS Safety Report 8781637 (Version 2)
Quarter: 2012Q4

REPORT INFORMATION
  Report Type: 
  Country: US (occurrence: US)
  Receive Date: 20120913
  Receipt Date: 20121030
  Transmission Date: 20130627
  Serious: Yes (Other)
  Sender: FDA-Public Use
  Company Number: US-ASTELLAS-2012US007643

PATIENT
  Age: 23 Year
  Sex: Male
  Weight: 65 kg

DRUGS (11)
  1. AMBISOME [Suspect]
     Indication: PRODUCT USED FOR UNKNOWN INDICATION
     Dosage: UNK
     Route: 065
     Dates: start: 20120810, end: 20120814
  2. VELCADE [Suspect]
     Indication: B PRECURSOR TYPE ACUTE LEUKAEMIA
     Dosage: 1.3 mg/m2, Cyclic
     Route: 040
     Dates: start: 20120712, end: 20120722
  3. CYTARABINE [Suspect]
     Indication: B PRECURSOR TYPE ACUTE LEUKAEMIA
     Dosage: 70 mg, Cyclic
     Route: 037
     Dates: start: 20120712, end: 20120712
  4. CYTARABINE [Suspect]
     Dosage: 3000 mg/m2, Unknown/D
     Route: 042
  5. DOXORUBICIN [Suspect]
     Indication: B PRECURSOR TYPE ACUTE LEUKAEMIA
     Dosage: 60 mg/m2, Cyclic
     Route: 042
     Dates: start: 20120712, end: 20120712
  6. METHOTREXATE [Suspect]
     Indication: B PRECURSOR TYPE ACUTE LEUKAEMIA
     Dosage: UNK
     Route: 037
     Dates: start: 20120712, end: 20120813
  7. PEGASPARGASE [Suspect]
     Indication: B PRECURSOR TYPE ACUTE LEUKAEMIA
     Dosage: UNK
     Route: 065
     Dates: start: 20120712, end: 20120802
  8. PREDNISONE [Suspect]
     Indication: B PRECURSOR TYPE ACUTE LEUKAEMIA
     Dosage: 20 mg/m2, Cyclic
     Route: 048
     Dates: start: 20120712, end: 20120809
  9. VINCRISTINE [Suspect]
     Indication: B PRECURSOR TYPE ACUTE LEUKAEMIA
     Dosage: 1.5 mg/m2, Cyclic
     Route: 040
     Dates: start: 20120712, end: 20120802
  10. FLAGYL [Suspect]
     Indication: PRODUCT USED FOR UNKNOWN INDICATION
     Dosage: UNK
     Route: 065
     Dates: start: 20120804, end: 20120816
  11. TYLENOL [Suspect]
     Indication: PRODUCT USED FOR UNKNOWN INDICATION
     Dosage: UNK
     Route: 065

REACTIONS (7)
  - Hepatic lesion [Unknown]
  - Splenic lesion [Unknown]
  - Abscess fungal [Unknown]
  - Blood bilirubin increased [Not Recovered/Not Resolved]
  - Staphylococcal sepsis [Not Recovered/Not Resolved]
  - Anaemia [Unknown]
  - Thrombocytopenia [Unknown]
